FAERS Safety Report 5212980-5 (Version None)
Quarter: 2007Q1

REPORT INFORMATION
  Report Type: 
  Country: None (occurrence: None)
  Receive Date: 20070116
  Receipt Date: 20070102
  Transmission Date: 20070707
  Serious: Yes (Hospitalization, Other)
  Sender: FDA-Public Use
  Company Number: FABR-11705

PATIENT
  Age: 54 Year
  Sex: Female

DRUGS (11)
  1. FABRAZYME [Suspect]
     Indication: FABRY'S DISEASE
     Dosage: 70 MG, UNK; IV
     Route: 042
     Dates: start: 20040214, end: 20040601
  2. CALCIUM CHANNEL BLOCKER [Concomitant]
  3. STATINS [Concomitant]
  4. TRICYCLIC ANTIDEPRESSANT [Concomitant]
  5. IXEL [Concomitant]
  6. REVIA [Concomitant]
  7. SERESTA [Concomitant]
  8. MEPRONIZINE [Concomitant]
  9. PRAVASTATIN [Concomitant]
  10. MEDIATOR [Concomitant]
  11. ZANIDIP [Concomitant]

REACTIONS (3)
  - ANGIOEDEMA [None]
  - RASH [None]
  - SUICIDE ATTEMPT [None]
